FAERS Safety Report 21967772 (Version 1)
Quarter: 2023Q1

REPORT INFORMATION
  Report Type: Spontaneous
  Country: US (occurrence: None)
  Receive Date: 20230207
  Receipt Date: 20230207
  Transmission Date: 20230418
  Serious: No
  Sender: FDA-Public Use
  Company Number: None

PATIENT
  Age: 24 Year
  Sex: Male
  Weight: 85.73 kg

DRUGS (4)
  1. VIMPAT [Suspect]
     Active Substance: LACOSAMIDE
  2. LEVETIRACETAM [Concomitant]
  3. OXCARBAZEPINE [Concomitant]
  4. TOPIRAMATE [Suspect]
     Active Substance: TOPIRAMATE

REACTIONS (4)
  - Drug intolerance [None]
  - Seizure [None]
  - Inability to afford medication [None]
  - Product substitution issue [None]
